FAERS Safety Report 10075972 (Version 1)
Quarter: 2014Q2

REPORT INFORMATION
  Report Type: Spontaneous
  Country: US (occurrence: None)
  Receive Date: 20140411
  Receipt Date: 20140411
  Transmission Date: 20141212
  Serious: Yes (Other)
  Sender: FDA-Public Use
  Company Number: None

PATIENT
  Age: 68 Year
  Sex: Female
  Weight: 52.62 kg

DRUGS (15)
  1. ETHAMBUTOL [Suspect]
     Indication: TUBERCULOSIS
     Dosage: ETHAMBUTOL 1 TABLET TWICE DAILY BY MOUTH
     Route: 048
     Dates: start: 201209, end: 201307
  2. ISONIAZID [Suspect]
     Dosage: 1 TABLET ONCE DAILY BY MOUTH
     Route: 048
  3. CRESTOR [Concomitant]
  4. LISINOPRIL [Concomitant]
  5. CLONZAEPAM [Concomitant]
  6. MONTELUKAST [Concomitant]
  7. SYMBICOR [Concomitant]
  8. PROAIR HFA [Concomitant]
  9. ALBUTEROL [Concomitant]
  10. MULTI VITAMIN [Concomitant]
  11. VITAMIN D [Concomitant]
  12. VITAMIN C [Concomitant]
  13. VITAMIN E [Concomitant]
  14. VITAMIN B12 [Concomitant]
  15. ASPRIN [Concomitant]

REACTIONS (2)
  - Blindness [None]
  - Colour blindness [None]
